FAERS Safety Report 6024227-0 (Version None)
Quarter: 2008Q4

REPORT INFORMATION
  Report Type: 
  Country: None (occurrence: None)
  Receive Date: 20081224
  Receipt Date: 20081218
  Transmission Date: 20090506
  Serious: Yes (Hospitalization)
  Sender: FDA-Public Use
  Company Number: 236789J08USA

PATIENT
  Age: 39 Year
  Sex: Female
  Weight: 69 kg

DRUGS (2)
  1. REBIF [Suspect]
     Indication: MULTIPLE SCLEROSIS
     Dosage: 22 MCG, 3 IN 1 WEEKS, SUBCUTANEOUS-SEE IMAGE
     Route: 058
     Dates: start: 20080519, end: 20080719
  2. AMANTADINE HCL [Suspect]
     Dates: start: 20080101, end: 20080701

REACTIONS (6)
  - ABASIA [None]
  - ASTHENIA [None]
  - BLOOD PRESSURE DECREASED [None]
  - DIZZINESS [None]
  - DYSSTASIA [None]
  - SINUS BRADYCARDIA [None]
